FAERS Safety Report 21776722 (Version 2)
Quarter: 2022Q4

REPORT INFORMATION
  Report Type: Spontaneous
  Country: US (occurrence: US)
  Receive Date: 20221226
  Receipt Date: 20221226
  Transmission Date: 20230113
  Serious: No
  Sender: FDA-Public Use
  Company Number: US-COLLEGIUM PHARMACEUTICAL, INC.-2022CGM00281

PATIENT
  Sex: Female
  Weight: 99.773 kg

DRUGS (12)
  1. NUCYNTA [Suspect]
     Active Substance: TAPENTADOL HYDROCHLORIDE
     Dosage: 100 MG, 1X/DAY
     Route: 048
     Dates: end: 2021
  2. NUCYNTA [Suspect]
     Active Substance: TAPENTADOL HYDROCHLORIDE
     Dosage: 50 MG, 1X/DAY IN THE LATE AFTERNOON/EVENING
     Route: 048
     Dates: start: 2021
  3. NUCYNTA [Suspect]
     Active Substance: TAPENTADOL HYDROCHLORIDE
  4. NEURONTIN [Concomitant]
     Active Substance: GABAPENTIN
     Dosage: 900 MG, 1X/DAY
  5. CYMBALTA [Concomitant]
     Active Substance: DULOXETINE HYDROCHLORIDE
     Dosage: 90 MG, 1X/DAY
  6. TOPAMAX [Concomitant]
     Active Substance: TOPIRAMATE
     Dosage: 125 MG, 1X/DAY
  7. ^NEUROTENSIN^ [Concomitant]
     Dosage: UNK, AS NEEDED
  8. MAGNESIUM [Concomitant]
     Active Substance: MAGNESIUM
     Dosage: UNK, 1X/DAY
  9. VITAMIN D [Concomitant]
     Active Substance: VITAMIN D NOS
     Dosage: UNK, 1X/DAY
  10. VITAMIN E [Concomitant]
     Active Substance: .ALPHA.-TOCOPHEROL
     Dosage: UNK, 1X/DAY
  11. ZINC [Concomitant]
     Active Substance: ZINC
     Dosage: UNK, 1X/DAY
  12. VITAMIN B12 [Concomitant]
     Active Substance: CYANOCOBALAMIN
     Dosage: UNK, 1X/DAY

REACTIONS (1)
  - Drug screen negative [Not Recovered/Not Resolved]
